FAERS Safety Report 7574143-8 (Version None)
Quarter: 2011Q2

REPORT INFORMATION
  Report Type: 
  Country: None (occurrence: None)
  Receive Date: 20110627
  Receipt Date: 20110615
  Transmission Date: 20111010
  Serious: Yes (Other)
  Sender: FDA-Public Use
  Company Number: PHHY2010CA74088

PATIENT
  Sex: Male

DRUGS (2)
  1. SANDOSTATIN LAR [Suspect]
     Indication: CARCINOID TUMOUR
     Dosage: 30 MG, QMO
     Route: 030
     Dates: start: 20101028
  2. SANDOSTATIN LAR [Suspect]
     Dosage: 30 MG, EVERY 4 WEEKS
     Route: 030
     Dates: start: 20110413

REACTIONS (12)
  - ABDOMINAL PAIN [None]
  - DIARRHOEA [None]
  - DECREASED APPETITE [None]
  - ASTHENIA [None]
  - VOMITING [None]
  - SMALL INTESTINAL OBSTRUCTION [None]
  - JAUNDICE [None]
  - ABDOMINAL DISTENSION [None]
  - METASTASES TO PERITONEUM [None]
  - MALAISE [None]
  - BLOOD PRESSURE DIASTOLIC INCREASED [None]
  - NAUSEA [None]
